FAERS Safety Report 8772569 (Version 2)
Quarter: 2012Q4

REPORT INFORMATION
  Report Type: 
  Country: EG (occurrence: EG)
  Receive Date: 20120905
  Receipt Date: 20120907
  Transmission Date: 20130627
  Serious: Yes (Death, Other)
  Sender: FDA-Public Use
  Company Number: EG-JNJFOC-20120814992

PATIENT
  Sex: Female

DRUGS (5)
  1. CAELYX [Suspect]
     Indication: BREAST CANCER
     Dosage: on day 1 for 2 cycles to be repeated every 3 weeks
     Route: 042
  2. ENDOXAN [Suspect]
     Indication: BREAST CANCER
     Dosage: on day 1 for 2 cycles to be repeated every 3 weeks
     Route: 042
  3. PACLITAXEL [Suspect]
     Indication: BREAST CANCER
     Dosage: 4 cycles to be repeated every 3 weeks
     Route: 065
  4. G-CSF [Suspect]
     Indication: BREAST CANCER
     Route: 065
  5. DOCETAXEL [Suspect]
     Indication: BREAST CANCER
     Dosage: 6  cycles
     Route: 065

REACTIONS (3)
  - Death [Fatal]
  - Abortion induced [Unknown]
  - Exposure during pregnancy [Recovered/Resolved]
